FAERS Safety Report 20678556 (Version 1)
Quarter: 2022Q2

REPORT INFORMATION
  Report Type: Report from Study
  Country: IN (occurrence: IN)
  Receive Date: 20220406
  Receipt Date: 20220406
  Transmission Date: 20220721
  Serious: Yes (Hospitalization, Other)
  Sender: FDA-Public Use
  Company Number: IN-NOVARTISPH-NVSC2022IN075764

PATIENT
  Age: 70 Year
  Sex: Male

DRUGS (2)
  1. SACUBITRIL\VALSARTAN [Suspect]
     Active Substance: SACUBITRIL\VALSARTAN
     Indication: Cardiac failure
     Dosage: 50 MG, BID
     Route: 048
     Dates: start: 2019, end: 20210825
  2. SACUBITRIL\VALSARTAN [Suspect]
     Active Substance: SACUBITRIL\VALSARTAN
     Dosage: 50 MG (2 TABLETS IN MORNING AND 2 TABLETS IN EVENING
     Route: 048
     Dates: start: 20210826

REACTIONS (3)
  - Dyspnoea [Unknown]
  - Thrombosis [Unknown]
  - Epistaxis [Unknown]
